FAERS Safety Report 16664580 (Version 5)
Quarter: 2020Q1

REPORT INFORMATION
  Report Type: Report from Study
  Country: None (occurrence: NL)
  Receive Date: 20190802
  Receipt Date: 20200312
  Transmission Date: 20200409
  Serious: Yes (Other)
  Sender: FDA-Public Use
  Company Number: NL-ABBVIE-19S-114-2776560-00

PATIENT
  Age: 74 Year
  Sex: Female
  Weight: 89.5 kg

DRUGS (8)
  1. DUODOPA [Suspect]
     Active Substance: CARBIDOPA\LEVODOPA
     Indication: PARKINSON^S DISEASE
     Dosage: CONTINUOUS DOSE 3.7
     Route: 050
  2. SINEMET CR [Concomitant]
     Active Substance: CARBIDOPA\LEVODOPA
     Indication: PRODUCT USED FOR UNKNOWN INDICATION
     Dosage: 2 SINEMET AT START OF THE NIGHT
  3. DUODOPA [Suspect]
     Active Substance: CARBIDOPA\LEVODOPA
     Dosage: MD: 10.7, CD: 3.8, ED: 2.0
     Route: 050
     Dates: end: 201907
  4. TERRA-CORTRIL [Concomitant]
     Active Substance: HYDROCORTISONE ACETATE\OXYTETRACYCLINE HYDROCHLORIDE
     Indication: FIBROMA
  5. DUODOPA [Suspect]
     Active Substance: CARBIDOPA\LEVODOPA
     Dosage: MD: 10.7, CD: 4.0, ED: 2.0
     Route: 050
     Dates: start: 201907, end: 20190724
  6. DUODOPA [Suspect]
     Active Substance: CARBIDOPA\LEVODOPA
     Dosage: MD: 10.7 ; CD: 3.8; ED: 2.0.
     Route: 050
  7. CLOZAPINE. [Suspect]
     Active Substance: CLOZAPINE
     Indication: PRODUCT USED FOR UNKNOWN INDICATION
     Route: 065
  8. MADOPAR DISPER [Concomitant]
     Active Substance: BENSERAZIDE HYDROCHLORIDE\LEVODOPA
     Indication: PRODUCT USED FOR UNKNOWN INDICATION
     Dosage: IF NECESSARY

REACTIONS (31)
  - Malaise [Recovered/Resolved]
  - Dyspnoea [Recovered/Resolved]
  - Hallucination [Recovered/Resolved]
  - Hypokinesia [Unknown]
  - Dizziness [Not Recovered/Not Resolved]
  - Discomfort [Recovered/Resolved]
  - Neuralgia [Not Recovered/Not Resolved]
  - Decreased activity [Not Recovered/Not Resolved]
  - Therapeutic product effect incomplete [Recovered/Resolved]
  - Parkinson^s disease [Recovered/Resolved]
  - Medical device site dryness [Unknown]
  - Stoma site erythema [Unknown]
  - Therapeutic product effect variable [Unknown]
  - Mood swings [Not Recovered/Not Resolved]
  - Memory impairment [Not Recovered/Not Resolved]
  - On and off phenomenon [Recovered/Resolved]
  - Unresponsive to stimuli [Recovered/Resolved]
  - Nausea [Recovered/Resolved]
  - Confusional state [Not Recovered/Not Resolved]
  - Speech disorder [Recovered/Resolved]
  - Frequent bowel movements [Recovered/Resolved]
  - Medical device site injury [Unknown]
  - Therapeutic product effect variable [Not Recovered/Not Resolved]
  - Muscle spasms [Not Recovered/Not Resolved]
  - Head discomfort [Not Recovered/Not Resolved]
  - Adverse drug reaction [Unknown]
  - Abnormal faeces [Recovered/Resolved]
  - Musculoskeletal stiffness [Unknown]
  - Fatigue [Not Recovered/Not Resolved]
  - Muscular weakness [Not Recovered/Not Resolved]
  - Emotional disorder [Not Recovered/Not Resolved]

NARRATIVE: CASE EVENT DATE: 20190722
